FAERS Safety Report 8622886-7 (Version None)
Quarter: 2012Q3

REPORT INFORMATION
  Report Type: 
  Country: None (occurrence: None)
  Receive Date: 20120827
  Receipt Date: 20091006
  Transmission Date: 20120928
  Serious: Yes (Other)
  Sender: FDA-Public Use
  Company Number: GB-RANBAXY-2009RR-28470

PATIENT
  Age: 32 Year
  Sex: Female
  Weight: 68 kg

DRUGS (4)
  1. COMBIVIR [Suspect]
     Indication: HIV INFECTION
     Dosage: UNK
     Route: 048
     Dates: start: 20030529
  2. EFAVIRENZ [Suspect]
     Indication: HIV INFECTION
     Dosage: 600 MG, QD
     Route: 048
     Dates: start: 20030529
  3. SEPTRA [Suspect]
     Indication: ANTIFUNGAL PROPHYLAXIS
     Dosage: 480 MG, QD
     Route: 048
     Dates: start: 20030429, end: 20090804
  4. ACYCLOVIR [Suspect]
     Indication: ANTIVIRAL PROPHYLAXIS
     Dosage: 800 MG, QD
     Route: 048
     Dates: start: 20030429

REACTIONS (2)
  - PREGNANCY [None]
  - ABORTION MISSED [None]
